FAERS Safety Report 4955140-5 (Version None)
Quarter: 2006Q1

REPORT INFORMATION
  Report Type: 
  Country: None (occurrence: None)
  Receive Date: 20060322
  Receipt Date: 20060309
  Transmission Date: 20060701
  Serious: Yes (Other)
  Sender: FDA-Public Use
  Company Number: 2006034534

PATIENT
  Sex: Male
  Weight: 79.3795 kg

DRUGS (3)
  1. VIAGRA [Suspect]
     Indication: ILL-DEFINED DISORDER
     Dosage: 3 YEARS AGO
  2. TAMSULOSIN HYDROCHLORIDE                (TAMSULOSIN HYDROCHLORIDE) [Concomitant]
  3. CHOLESTEROL               (CHOLESTEROL) [Concomitant]

REACTIONS (4)
  - CONDITION AGGRAVATED [None]
  - HAND FRACTURE [None]
  - HEADACHE [None]
  - PROSTATE EXAMINATION ABNORMAL [None]
